FAERS Safety Report 4375771-3 (Version None)
Quarter: 2004Q2

REPORT INFORMATION
  Report Type: 
  Country: None (occurrence: None)
  Receive Date: 20040610
  Receipt Date: 20040604
  Transmission Date: 20050107
  Serious: Yes (Hospitalization)
  Sender: FDA-Public Use
  Company Number: FR-MERCK-0406FRA00023

PATIENT
  Age: 74 Year
  Sex: Female
  Weight: 62 kg

DRUGS (4)
  1. MODURETIC 5-50 [Concomitant]
     Indication: HYPERTENSION
     Route: 048
     Dates: end: 20040511
  2. BISOPROLOL [Concomitant]
     Indication: CARDIAC FAILURE
     Route: 048
     Dates: start: 20040115, end: 20040506
  3. FLECAINIDE ACETATE [Concomitant]
     Indication: EXTRASYSTOLES
     Route: 048
     Dates: start: 20040215, end: 20040506
  4. VIOXX [Suspect]
     Route: 048
     Dates: start: 20040426, end: 20040506

REACTIONS (4)
  - BLOOD CREATININE INCREASED [None]
  - BRADYCARDIA [None]
  - DIZZINESS [None]
  - HYPERTENSION [None]
